FAERS Safety Report 5032195-3 (Version None)
Quarter: 2006Q2

REPORT INFORMATION
  Report Type: 
  Country: None (occurrence: None)
  Receive Date: 20060619
  Receipt Date: 20060609
  Transmission Date: 20061013
  Serious: Yes (Death, Other)
  Sender: FDA-Public Use
  Company Number: 2005057052

PATIENT
  Age: 53 Year
  Sex: Female

DRUGS (11)
  1. BEXTRA [Suspect]
     Indication: ARTHRITIS
     Dates: start: 20041001
  2. BEXTRA [Suspect]
     Indication: CARPAL TUNNEL SYNDROME
     Dates: start: 20041001
  3. CELEBREX [Suspect]
     Indication: ILL-DEFINED DISORDER
     Dosage: 200 MG (200 MG, 1 IN 1 D)
     Dates: start: 20001011
  4. VERAPAMIL [Concomitant]
  5. HYDROCHLOROTHIAZIDE [Concomitant]
  6. LIPITOR (AOTRAVATATIN) [Concomitant]
  7. DIOVAN [Concomitant]
  8. ACETYLSALICYLIC ACID (ACETYLSALICYCLIC ACID) [Concomitant]
  9. CALCIUM (CALCIUM) [Concomitant]
  10. MULTIVITAMIN [Concomitant]
  11. ACIPHEX [Concomitant]

REACTIONS (18)
  - BRAIN DEATH [None]
  - CARDIAC PROCEDURE COMPLICATION [None]
  - CAROTID ARTERY STENOSIS [None]
  - CEREBRAL INFARCTION [None]
  - CEREBROVASCULAR ACCIDENT [None]
  - CHEST DISCOMFORT [None]
  - CORONARY ARTERY DISEASE [None]
  - DEEP VEIN THROMBOSIS [None]
  - DEPRESSED LEVEL OF CONSCIOUSNESS [None]
  - DIZZINESS [None]
  - DYSPNOEA [None]
  - FALL [None]
  - FATIGUE [None]
  - HYPERHIDROSIS [None]
  - NAUSEA [None]
  - RESPIRATORY FAILURE [None]
  - TREMOR [None]
  - VOMITING [None]
